FAERS Safety Report 10374029 (Version 1)
Quarter: 2014Q3

REPORT INFORMATION
  Report Type: Spontaneous
  Country: JP (occurrence: JP)
  Receive Date: 20140810
  Receipt Date: 20140810
  Transmission Date: 20150326
  Serious: No
  Sender: FDA-Public Use
  Company Number: PHHY2013JP160165

PATIENT
  Age: 69 Year
  Sex: Male

DRUGS (2)
  1. TASIGNA [Suspect]
     Active Substance: NILOTINIB
     Indication: CHRONIC MYELOID LEUKAEMIA
     Dosage: 400 MG, DAILY
  2. TASIGNA [Suspect]
     Active Substance: NILOTINIB
     Dosage: 600 MG, UNK

REACTIONS (2)
  - Rash [Not Recovered/Not Resolved]
  - Blood creatine phosphokinase increased [Not Recovered/Not Resolved]
